FAERS Safety Report 20221109 (Version 2)
Quarter: 2022Q1

REPORT INFORMATION
  Report Type: Spontaneous
  Country: AU (occurrence: AU)
  Receive Date: 20211223
  Receipt Date: 20220203
  Transmission Date: 20220423
  Serious: Yes (Other)
  Sender: FDA-Public Use
  Company Number: AU-HORMOSAN PHARMA GMBH-2021-24916

PATIENT
  Sex: Female

DRUGS (1)
  1. ETHINYL ESTRADIOL\LEVONORGESTREL [Suspect]
     Active Substance: ETHINYL ESTRADIOL\LEVONORGESTREL
     Indication: Product used for unknown indication
     Dosage: UNK, (2 TABLETS ON ONE SLEEVE)
     Route: 065
     Dates: start: 20211115

REACTIONS (3)
  - Nausea [Recovered/Resolved]
  - Hypersensitivity [Recovered/Resolved]
  - Product quality issue [Unknown]
